FAERS Safety Report 8313417-X (Version None)
Quarter: 2012Q2

REPORT INFORMATION
  Report Type: 
  Country: None (occurrence: None)
  Receive Date: 20120426
  Receipt Date: 20120419
  Transmission Date: 20120825
  Serious: Yes (Other)
  Sender: FDA-Public Use
  Company Number: US-JNJFOC-20120410106

PATIENT
  Sex: Female
  Weight: 88.45 kg

DRUGS (7)
  1. PREVACID [Concomitant]
     Indication: GASTROOESOPHAGEAL REFLUX DISEASE
     Route: 048
  2. ZYRTEC [Concomitant]
     Indication: MULTIPLE ALLERGIES
     Route: 048
  3. SIMPONI [Suspect]
     Indication: ARTHRITIS
     Route: 058
     Dates: start: 20120301
  4. WELLBUTRIN [Concomitant]
     Indication: FIBROMYALGIA
     Route: 048
  5. SULFASALAZINE [Concomitant]
     Indication: ARTHRITIS
     Route: 048
  6. SIMPONI [Suspect]
     Route: 058
     Dates: start: 20100801, end: 20100801
  7. GABAPENTIN [Concomitant]
     Indication: MULTIPLE ALLERGIES
     Route: 048

REACTIONS (5)
  - DRUG DOSE OMISSION [None]
  - HYPERTENSION [None]
  - INJECTION SITE REACTION [None]
  - LYMPHADENOPATHY [None]
  - DEVICE FAILURE [None]
